FAERS Safety Report 12632737 (Version 2)
Quarter: 2016Q3

REPORT INFORMATION
  Report Type: Spontaneous
  Country: US (occurrence: US)
  Receive Date: 20160808
  Receipt Date: 20160808
  Transmission Date: 20161109
  Serious: No
  Sender: FDA-Public Use
  Company Number: US-BEH-2015056691

PATIENT
  Sex: Male
  Weight: 71 kg

DRUGS (24)
  1. COLACE [Concomitant]
     Active Substance: DOCUSATE SODIUM
  2. SOMA [Concomitant]
     Active Substance: CARISOPRODOL
  3. CALCIUM+D [Concomitant]
     Active Substance: CALCIUM\VITAMIN D
  4. CROMOLYN SODIUM. [Concomitant]
     Active Substance: CROMOLYN SODIUM
  5. DIPHENHYDRAMINE. [Concomitant]
     Active Substance: DIPHENHYDRAMINE
  6. OMEPRAZOLE. [Concomitant]
     Active Substance: OMEPRAZOLE
  7. GEMFIBROZIL. [Concomitant]
     Active Substance: GEMFIBROZIL
  8. ADVAIR HFA [Concomitant]
     Active Substance: FLUTICASONE PROPIONATE\SALMETEROL XINAFOATE
  9. XOLAIR [Concomitant]
     Active Substance: OMALIZUMAB
  10. ACETAMINOPHEN. [Concomitant]
     Active Substance: ACETAMINOPHEN
  11. MORPHINE [Concomitant]
     Active Substance: MORPHINE
  12. SIMVASTATIN. [Concomitant]
     Active Substance: SIMVASTATIN
  13. LISINOPRIL. [Concomitant]
     Active Substance: LISINOPRIL
  14. ZYRTEC [Concomitant]
     Active Substance: CETIRIZINE HYDROCHLORIDE
  15. DOCUSATE SODIUM. [Concomitant]
     Active Substance: DOCUSATE SODIUM
  16. HIZENTRA [Suspect]
     Active Substance: HUMAN IMMUNOGLOBULIN G
     Indication: IMMUNODEFICIENCY COMMON VARIABLE
     Route: 058
  17. TEMAZEPAM. [Concomitant]
     Active Substance: TEMAZEPAM
  18. VENTOLIN [Concomitant]
     Active Substance: ALBUTEROL SULFATE
  19. SPIRIVA [Concomitant]
     Active Substance: TIOTROPIUM BROMIDE MONOHYDRATE
  20. FISH OIL [Concomitant]
     Active Substance: FISH OIL
  21. EPIPEN [Concomitant]
     Active Substance: EPINEPHRINE
  22. KETOTIFEN FUMARATE. [Concomitant]
     Active Substance: KETOTIFEN FUMARATE
  23. PERCOCET [Concomitant]
     Active Substance: ACETAMINOPHEN\OXYCODONE HYDROCHLORIDE
  24. MULTIVITAMINS [Concomitant]
     Active Substance: VITAMINS

REACTIONS (2)
  - Infusion site swelling [Unknown]
  - Pyrexia [Unknown]
